FAERS Safety Report 4539747-5 (Version None)
Quarter: 2004Q4

REPORT INFORMATION
  Report Type: 
  Country: None (occurrence: None)
  Receive Date: 20041223
  Receipt Date: 20041214
  Transmission Date: 20050328
  Serious: Yes (Other)
  Sender: FDA-Public Use
  Company Number: 2004114455

PATIENT
  Age: 79 Year
  Sex: Female

DRUGS (1)
  1. PHENYTOIN SODIUM [Suspect]
     Indication: CONVULSION
     Dosage: ORAL
     Route: 048

REACTIONS (4)
  - CONVULSION [None]
  - DRUG INEFFECTIVE [None]
  - MEDICATION ERROR [None]
  - SOMNOLENCE [None]
